FAERS Safety Report 16346876 (Version 17)
Quarter: 2022Q1

REPORT INFORMATION
  Report Type: Report from Study
  Country: ES (occurrence: ES)
  Receive Date: 20190523
  Receipt Date: 20220309
  Transmission Date: 20220424
  Serious: Yes (Hospitalization)
  Sender: FDA-Public Use
  Company Number: ES-SA-2019SA134459

PATIENT
  Age: 42 Year
  Sex: Male

DRUGS (2)
  1. ALEMTUZUMAB [Suspect]
     Active Substance: ALEMTUZUMAB
     Indication: Relapsing multiple sclerosis
     Dosage: 12 MG, QD
     Route: 041
     Dates: start: 20170731, end: 20170802
  2. ALEMTUZUMAB [Suspect]
     Active Substance: ALEMTUZUMAB
     Dosage: 12 MG, QD
     Route: 041
     Dates: start: 20160718, end: 20160722

REACTIONS (14)
  - Pancytopenia [Recovered/Resolved]
  - Pancytopenia [Recovered/Resolved]
  - Neutropenia [Recovered/Resolved]
  - Thrombocytopenic purpura [Recovered/Resolved]
  - Upper respiratory tract infection [Recovered/Resolved]
  - Pneumonia bacterial [Recovered/Resolved]
  - Pneumonia [Recovered/Resolved]
  - Pneumonia [Recovered/Resolved]
  - Gamma-glutamyltransferase increased [Recovered/Resolved]
  - Influenza [Recovered/Resolved]
  - Vitamin D deficiency [Not Recovered/Not Resolved]
  - Lipoma [Recovered/Resolved]
  - Lower respiratory tract infection [Recovered/Resolved]
  - Platelet count decreased [Not Recovered/Not Resolved]

NARRATIVE: CASE EVENT DATE: 20180103
